FAERS Safety Report 25844933 (Version 2)
Quarter: 2025Q4

REPORT INFORMATION
  Report Type: Report from Study
  Country: US (occurrence: None)
  Receive Date: 20250925
  Receipt Date: 20251030
  Transmission Date: 20260117
  Serious: Yes (Other)
  Sender: UCB
  Company Number: US-UCBSA-2025058576

PATIENT
  Weight: 54 kg

DRUGS (16)
  1. FENFLURAMINE [Suspect]
     Active Substance: FENFLURAMINE
     Indication: Lennox-Gastaut syndrome
     Dosage: 6 MILLILITER, 2X/DAY (BID)
  2. XCOPRI [Suspect]
     Active Substance: CENOBAMATE
     Indication: Product used for unknown indication
     Dosage: 150 MILLIGRAM, ONCE DAILY (QD)
  3. XCOPRI [Suspect]
     Active Substance: CENOBAMATE
     Dosage: 100 MILLIGRAMS
  4. NAYZILAM [Concomitant]
     Active Substance: MIDAZOLAM
     Indication: Product used for unknown indication
     Dosage: 5 MILLIGRAM
  5. VALTOCO [Concomitant]
     Active Substance: DIAZEPAM
     Indication: Product used for unknown indication
     Dosage: L SPRAY (7,5 MG) INTO EACH NOSTRIL BY INTRANASAL ROUTE ONCE FORA TOTAL DOSE OF 15 MG
  6. STOOL SOFTENER (DOCUSATE) [Concomitant]
     Active Substance: DOCUSATE
     Indication: Product used for unknown indication
     Dosage: 250 MILLIGRAM ONCE DAILY
  7. Depo SubQ Prover.a [Concomitant]
     Indication: Product used for unknown indication
     Dosage: UNK
  8. CLONAZEPAM [Concomitant]
     Active Substance: CLONAZEPAM
     Indication: Product used for unknown indication
     Dosage: 0.5 MILLIGRAM TABLET ON THE TONGUE AND ALLOW TO DISSOLVE AS NEEDED FOR SEIZURE CONTROL ORALLY TWICE PER DAY PRN
  9. CLOBAZAM [Concomitant]
     Active Substance: CLOBAZAM
     Indication: Product used for unknown indication
     Dosage: 20 MILLIGRAM
  10. LAMOTRIGINE [Concomitant]
     Active Substance: LAMOTRIGINE
     Indication: Product used for unknown indication
     Dosage: 300 MILLIGRAM, 2X/DAY (BID)
  11. LAMOTRIGINE [Concomitant]
     Active Substance: LAMOTRIGINE
     Dosage: 200 MILLIGRAM 1.5 TABLETS ORAJJY TWICE A DAY PATIENT WILL TAPER INEDICAT.ION AS DIRECTED
  12. LAMOTRIGINE [Concomitant]
     Active Substance: LAMOTRIGINE
     Dosage: 100 MILLIGRAM L.5 TABLET ORALLY TV.RICE A DAY PATIENT WILL TAPER MEDICATION AS DIRECTED
  13. LAMOTRIGINE [Concomitant]
     Active Substance: LAMOTRIGINE
     Dosage: 50 MILLIGRAM  L.5 TABLET ORALLY TV.RICE A DAY PATIENT WILL TAPER MEDICATION AS DIRECTED
  14. LAMOTRIGINE [Concomitant]
     Active Substance: LAMOTRIGINE
     Indication: Product used for unknown indication
     Dosage: 100 MILLIGRAM TABLETS TWICE A DAY AND WEAN 100 MG WEEKLY UNTIL OFF ORALLY AS D.IREL:TED
  15. EPIDIOLEX [Concomitant]
     Active Substance: CANNABIDIOL
     Indication: Product used for unknown indication
     Dosage: 6 MILLILITER, 2X/DAY (BID)
  16. VITAMINS [Concomitant]
     Active Substance: VITAMINS
     Indication: Product used for unknown indication
     Dosage: UNK

REACTIONS (12)
  - Seizure [Recovering/Resolving]
  - Partial seizures [Unknown]
  - Petit mal epilepsy [Unknown]
  - Myoclonic epilepsy [Unknown]
  - Generalised tonic-clonic seizure [Unknown]
  - Atonic seizures [Unknown]
  - Communication disorder [Unknown]
  - Increased appetite [Unknown]
  - Screaming [Unknown]
  - Sedation [Recovering/Resolving]
  - Gait disturbance [Unknown]
  - Drug ineffective [Unknown]
